FAERS Safety Report 4657935-4 (Version None)
Quarter: 2005Q2

REPORT INFORMATION
  Report Type: 
  Country: None (occurrence: None)
  Receive Date: 20050504
  Receipt Date: 20041206
  Transmission Date: 20051028
  Serious: Yes (Other)
  Sender: FDA-Public Use
  Company Number: 003690

PATIENT
  Sex: Female

DRUGS (4)
  1. CENESTIN [Suspect]
  2. ESTRADIOL [Suspect]
  3. ESTROPIPATE [Suspect]
  4. ESTERIFIED ESTROGENS [Suspect]

REACTIONS (1)
  - BREAST CANCER [None]
